FAERS Safety Report 23546233 (Version 1)
Quarter: 2024Q1

REPORT INFORMATION
  Report Type: Spontaneous
  Country: US (occurrence: US)
  Receive Date: 20240220
  Receipt Date: 20240220
  Transmission Date: 20240409
  Serious: No
  Sender: FDA-Public Use
  Company Number: US-TEVA-VS-3141658

PATIENT
  Age: 73 Year
  Sex: Female

DRUGS (3)
  1. HYDRALAZINE [Suspect]
     Active Substance: HYDRALAZINE HYDROCHLORIDE
     Indication: Product used for unknown indication
     Dosage: TAKEN FOR THREE DAYS
     Route: 048
     Dates: start: 20231103
  2. LENVIMA [Concomitant]
     Active Substance: LENVATINIB
     Indication: Endometrial cancer
     Route: 048
     Dates: start: 20231002
  3. LENVIMA [Concomitant]
     Active Substance: LENVATINIB
     Indication: Endometrial cancer
     Dates: start: 20231103

REACTIONS (5)
  - Blood pressure increased [Recovered/Resolved]
  - Heart rate increased [Recovered/Resolved]
  - Headache [Recovered/Resolved]
  - Nightmare [Recovered/Resolved]
  - Nausea [Recovered/Resolved]
